FAERS Safety Report 5848409-3 (Version None)
Quarter: 2008Q3

REPORT INFORMATION
  Report Type: 
  Country: None (occurrence: None)
  Receive Date: 20080815
  Receipt Date: 20080815
  Transmission Date: 20090109
  Serious: Yes (Disabling)
  Sender: FDA-Public Use
  Company Number: None

PATIENT
  Sex: Female
  Weight: 55.3388 kg

DRUGS (2)
  1. CIPRO [Suspect]
     Indication: URINARY TRACT INFECTION
     Dosage: 250 MG BID ORAL
     Route: 048
     Dates: start: 20071017, end: 20080514
  2. CIPRO [Suspect]
     Indication: URINARY TRACT INFECTION
     Dosage: 500MG 1/2 TID ORAL
     Route: 048
     Dates: start: 20080602, end: 20080607

REACTIONS (5)
  - ARTHROPATHY [None]
  - ERYTHEMA [None]
  - JOINT INSTABILITY [None]
  - PAIN IN EXTREMITY [None]
  - SWELLING [None]
